FAERS Safety Report 24910145 (Version 1)
Quarter: 2025Q1

REPORT INFORMATION
  Report Type: Spontaneous
  Country: US (occurrence: US)
  Receive Date: 20250131
  Receipt Date: 20250131
  Transmission Date: 20250409
  Serious: Yes (Other)
  Sender: PFIZER
  Company Number: US-PFIZER INC-PV202500010427

PATIENT
  Age: 31 Year
  Sex: Male

DRUGS (2)
  1. SULFAMETHOXAZOLE\TRIMETHOPRIM [Interacting]
     Active Substance: SULFAMETHOXAZOLE\TRIMETHOPRIM
     Indication: Prophylaxis
     Dosage: 2X/DAY, DOUBLE STRENGTH
  2. SULFAMETHOXAZOLE\TRIMETHOPRIM [Interacting]
     Active Substance: SULFAMETHOXAZOLE\TRIMETHOPRIM
     Indication: Pertussis

REACTIONS (2)
  - Alcohol intolerance [Unknown]
  - Alcohol interaction [Unknown]
